FAERS Safety Report 6686227-7 (Version None)
Quarter: 2010Q2

REPORT INFORMATION
  Report Type: 
  Country: None (occurrence: None)
  Receive Date: 20100414
  Receipt Date: 20100331
  Transmission Date: 20101027
  Serious: Yes (Hospitalization)
  Sender: FDA-Public Use
  Company Number: 004260

PATIENT
  Sex: Male

DRUGS (7)
  1. OMEPRAZOLE [Suspect]
     Dosage: ORAL
     Route: 048
     Dates: end: 20091218
  2. INFLUENZA VACCINE (PANDEMRIX HINI) [Suspect]
     Indication: PROPHYLAXIS
     Dosage: INTRAMUSCULAR
     Route: 030
     Dates: start: 20091209, end: 20091209
  3. VENTOLIN [Suspect]
     Indication: ASTHMA
     Dates: end: 20091218
  4. SERETIDE /01434201/ (SERETIDE) (NOT SPECIFIED) [Suspect]
     Indication: ASTHMA
     Dates: end: 20091218
  5. FLIXOTIDE /00972202/ (FLIXOTIDE) (NOT SPECIFIED) [Suspect]
     Indication: ASTHMA
     Dates: end: 20091218
  6. HYDROCORTISONE [Concomitant]
  7. UVEDOSE [Concomitant]

REACTIONS (12)
  - ABNORMAL BEHAVIOUR [None]
  - AGITATION [None]
  - ALLERGIC GRANULOMATOUS ANGIITIS [None]
  - APATHY [None]
  - ASTHENIA [None]
  - DISTURBANCE IN ATTENTION [None]
  - ENCEPHALITIS [None]
  - HYPERAESTHESIA [None]
  - IRRITABILITY [None]
  - MEMORY IMPAIRMENT [None]
  - MYALGIA [None]
  - PYREXIA [None]
